FAERS Safety Report 9171629 (Version 4)
Quarter: 2013Q2

REPORT INFORMATION
  Report Type: Report from Study
  Country: JP (occurrence: JP)
  Receive Date: 20130319
  Receipt Date: 20130603
  Transmission Date: 20140414
  Serious: Yes (Hospitalization, Disabling)
  Sender: FDA-Public Use
  Company Number: JP-GLAXOSMITHKLINE-B0875085A

PATIENT
  Age: 46 Year
  Sex: Female

DRUGS (19)
  1. TOPOTECAN HCL [Suspect]
     Indication: CERVIX CARCINOMA
     Dosage: .75MGM2 CYCLIC
     Route: 042
     Dates: start: 20130212
  2. CISPLATIN [Suspect]
     Indication: CERVIX CARCINOMA
     Dosage: 50MGM2 CYCLIC
     Route: 042
     Dates: start: 20130212
  3. EQUA [Concomitant]
     Dates: start: 20130116
  4. SEIBULE [Concomitant]
     Dates: start: 20130116
  5. MYSLEE [Concomitant]
     Dates: start: 20130117
  6. LOCOID [Concomitant]
     Dates: start: 20130116
  7. LULICON [Concomitant]
     Dates: start: 20130116
  8. LULICON [Concomitant]
     Dates: start: 20130116
  9. HIRUDOID OINTMENT [Concomitant]
     Dates: start: 20130116
  10. MYSER [Concomitant]
     Dates: start: 20130116
  11. MAGNESIUM OXIDE [Concomitant]
     Dates: start: 20130122
  12. CRESTOR [Concomitant]
     Dates: start: 20130129
  13. LAXOBERON [Concomitant]
     Dates: start: 20130215
  14. DEQUALINIUM CHLORIDE [Concomitant]
     Dates: start: 20130218
  15. ISODINE GARGLE [Concomitant]
     Dates: start: 20130218
  16. LEVEMIR [Concomitant]
     Dates: start: 20130129, end: 20130307
  17. HUMULIN R [Concomitant]
     Dates: start: 20130211, end: 20130213
  18. NOVORAPID [Concomitant]
     Dates: start: 20130212
  19. LANTUS [Concomitant]
     Dates: start: 20130308

REACTIONS (1)
  - Cerebral infarction [Recovering/Resolving]
